FAERS Safety Report 6475545-3 (Version None)
Quarter: 2009Q4

REPORT INFORMATION
  Report Type: 
  Country: None (occurrence: None)
  Receive Date: 20091204
  Receipt Date: 20091130
  Transmission Date: 20100525
  Serious: Yes (Other)
  Sender: FDA-Public Use
  Company Number: NZ-PFIZER INC-2009304072

PATIENT
  Age: 60 Year
  Sex: Female

DRUGS (1)
  1. CELEBREX [Suspect]
     Dosage: 200 MG, 1X/DAY

REACTIONS (4)
  - AGITATION [None]
  - DISINHIBITION [None]
  - HYPOMANIA [None]
  - HYPONATRAEMIA [None]
